FAERS Safety Report 5578209-3 (Version None)
Quarter: 2007Q4

REPORT INFORMATION
  Report Type: 
  Country: None (occurrence: None)
  Receive Date: 20071231
  Receipt Date: 20071220
  Transmission Date: 20080405
  Serious: Yes (Hospitalization)
  Sender: FDA-Public Use
  Company Number: ES-PFIZER INC-2007107093

PATIENT
  Age: 77 Year
  Sex: Female

DRUGS (9)
  1. ALDACTONE [Suspect]
     Indication: CARDIAC FAILURE CHRONIC
     Route: 048
     Dates: start: 20061101, end: 20070701
  2. LOSARTAN POTASSIUM [Interacting]
     Indication: CARDIAC FAILURE CHRONIC
     Route: 048
  3. SEGURIL [Concomitant]
     Indication: CARDIAC FAILURE CHRONIC
     Dosage: DAILY DOSE:120MG
     Route: 048
  4. DIANBEN [Concomitant]
     Indication: DIABETES MELLITUS
     Dosage: DAILY DOSE:850MG
     Route: 048
  5. SINTROM [Concomitant]
     Indication: THROMBOSIS PROPHYLAXIS
     Route: 048
     Dates: start: 19870101, end: 20070701
  6. DIGOXIN [Concomitant]
     Indication: ATRIAL FIBRILLATION
     Dosage: DAILY DOSE:1.5MG-FREQ:6 DAYS/WEEK
     Route: 048
     Dates: start: 19870101, end: 20070701
  7. TARDYFERON [Concomitant]
  8. SIMVASTATIN [Concomitant]
  9. INSULIN [Concomitant]
     Route: 058

REACTIONS (2)
  - BLOOD POTASSIUM INCREASED [None]
  - DRUG INTERACTION [None]
